FAERS Safety Report 9997828 (Version 1)
Quarter: 2014Q1

REPORT INFORMATION
  Report Type: Spontaneous
  Country: US (occurrence: None)
  Receive Date: 20140225
  Receipt Date: 20140225
  Transmission Date: 20141002
  Serious: Yes (Other)
  Sender: FDA-Public Use
  Company Number: 2013-US-002385

PATIENT
  Age: 35 Year
  Sex: Female

DRUGS (6)
  1. PRIALT [Suspect]
     Indication: PAIN
     Dosage: 0.175 UG, QH, INTRATHECAL
  2. SALINE [Suspect]
     Indication: PAIN
     Dosage: QH, INTRATHECAL
     Dates: start: 20131106
  3. DILAUDID (HYDROMORPHONE HYDROCHLORIDE) [Concomitant]
  4. AMBIEN (ZOLPIDEM TARTRATE) [Concomitant]
  5. ADDERALL (AMFETAMINE ASPARTATE, AMFETAMINE SULFATE, DEXAMFETAMINE SACCHARATE, DEXAMFETAMINE SULFATE) [Concomitant]
  6. PROTONIX [Concomitant]

REACTIONS (6)
  - Hallucination, auditory [None]
  - Hallucination, visual [None]
  - Blister [None]
  - Tongue blistering [None]
  - Confusional state [None]
  - Dizziness [None]
